FAERS Safety Report 9155260 (Version 1)
Quarter: 2013Q1

REPORT INFORMATION
  Report Type: Spontaneous
  Country: GB (occurrence: GB)
  Receive Date: 20130311
  Receipt Date: 20130311
  Transmission Date: 20140127
  Serious: Yes (Hospitalization)
  Sender: FDA-Public Use
  Company Number: GB-ROCHE-1194940

PATIENT
  Age: 75 Year
  Sex: Female
  Weight: 58 kg

DRUGS (5)
  1. MABTHERA [Suspect]
     Indication: NON-HODGKIN^S LYMPHOMA
     Dosage: 1 CYCLE
     Route: 042
     Dates: start: 20110221
  2. MABTHERA [Suspect]
     Dosage: 6 CYCLE
     Route: 065
     Dates: start: 201011
  3. FLUDARABINE [Concomitant]
     Indication: B-CELL LYMPHOMA
     Route: 065
     Dates: start: 201011
  4. CYCLOPHOSPHAMIDE [Concomitant]
     Indication: B-CELL LYMPHOMA
     Route: 065
     Dates: start: 201011
  5. METHOTREXATE [Concomitant]
     Route: 065
     Dates: start: 20110221

REACTIONS (2)
  - Pancytopenia [Unknown]
  - Autoimmune thrombocytopenia [Not Recovered/Not Resolved]
